FAERS Safety Report 17014844 (Version 1)
Quarter: 2019Q4

REPORT INFORMATION
  Report Type: Spontaneous
  Country: BR (occurrence: BR)
  Receive Date: 20191111
  Receipt Date: 20191111
  Transmission Date: 20200122
  Serious: Yes (Hospitalization, Other)
  Sender: FDA-Public Use
  Company Number: BR-GLAXOSMITHKLINE-BR2016GSK015139

PATIENT
  Sex: Female
  Weight: 63 kg

DRUGS (5)
  1. BENLYSTA [Suspect]
     Active Substance: BELIMUMAB
     Indication: SYSTEMIC LUPUS ERYTHEMATOSUS
     Dosage: 640 MG, UNK
     Dates: start: 20150622
  2. CALCIUM [Concomitant]
     Active Substance: CALCIUM
     Indication: PRODUCT USED FOR UNKNOWN INDICATION
     Dosage: UNK
  3. PLAQUINOL [Concomitant]
     Active Substance: HYDROXYCHLOROQUINE SULFATE
     Indication: PRODUCT USED FOR UNKNOWN INDICATION
     Dosage: UNK
  4. BENLYSTA [Suspect]
     Active Substance: BELIMUMAB
     Dosage: 620 MG, UNK
  5. PREDNISONA [Concomitant]
     Active Substance: PREDNISONE
     Indication: PRODUCT USED FOR UNKNOWN INDICATION
     Dosage: UNK

REACTIONS (12)
  - Rash macular [Unknown]
  - Overdose [Unknown]
  - Underdose [Unknown]
  - Product dose omission [Not Recovered/Not Resolved]
  - Product availability issue [Unknown]
  - Circumstance or information capable of leading to medication error [Recovered/Resolved]
  - Nephrolithiasis [Unknown]
  - Pain [Recovered/Resolved]
  - Renal pain [Unknown]
  - Erythema [Recovered/Resolved]
  - Skin disorder [Recovered/Resolved]
  - Inappropriate schedule of product administration [Recovered/Resolved]
